FAERS Safety Report 4641513-7 (Version None)
Quarter: 2005Q2

REPORT INFORMATION
  Report Type: 
  Country: None (occurrence: None)
  Receive Date: 20050421
  Receipt Date: 20050419
  Transmission Date: 20051028
  Serious: Yes (Other)
  Sender: FDA-Public Use
  Company Number: DE-GLAXOSMITHKLINE-D0046405A

PATIENT
  Sex: Male

DRUGS (1)
  1. AVANDAMET [Suspect]
     Dosage: 1002MG UNKNOWN
     Route: 065
     Dates: start: 20050401

REACTIONS (3)
  - ABNORMAL SENSATION IN EYE [None]
  - HEPATIC STEATOSIS [None]
  - SENSATION OF PRESSURE [None]
